FAERS Safety Report 9644168 (Version 2)
Quarter: 2013Q4

REPORT INFORMATION
  Report Type: Report from Study
  Country: US (occurrence: US)
  Receive Date: 20131024
  Receipt Date: 20131024
  Transmission Date: 20140711
  Serious: Yes (Hospitalization, Other)
  Sender: FDA-Public Use
  Company Number: US-ABBVIE-13P-163-1120108-00

PATIENT
  Age: 31 Year
  Sex: Female

DRUGS (18)
  1. LUPRON DEPOT [Suspect]
     Indication: ENDOMETRIOSIS
     Dates: start: 20130709, end: 20130820
  2. LUPRON DEPOT [Suspect]
     Dates: start: 201003, end: 201003
  3. LUPRON DEPOT [Suspect]
     Dates: start: 2009
  4. LUPRON DEPOT [Suspect]
     Dates: start: 2008
  5. LUPRON DEPOT [Suspect]
     Dates: start: 2006
  6. LUPRON DEPOT [Suspect]
     Indication: ENDOMETRIOSIS
     Dates: start: 20130613, end: 20130709
  7. LUPRON DEPOT [Suspect]
     Indication: DIARRHOEA
  8. ONDANSETRON [Suspect]
     Indication: NAUSEA
     Route: 048
     Dates: start: 20130926
  9. ONDANSETRON [Suspect]
     Indication: VOMITING
  10. MULTIVITAMIN [Concomitant]
     Indication: VITAMIN SUPPLEMENTATION
     Dosage: ONCE A DAY
  11. CALCIUM [Concomitant]
     Indication: MINERAL SUPPLEMENTATION
     Dosage: ONCE DAILY
  12. MAGNESIUM [Concomitant]
     Indication: MINERAL SUPPLEMENTATION
     Dosage: ONCE DAILY
  13. POTASSIUM [Concomitant]
     Indication: MINERAL SUPPLEMENTATION
     Dosage: ONCE DAILY
  14. NORETHINDRONE ACETATE [Concomitant]
     Indication: PRODUCT USED FOR UNKNOWN INDICATION
     Dates: start: 20130724, end: 20130923
  15. BELLADONNA [Concomitant]
     Indication: BLADDER SPASM
     Dates: start: 20130924
  16. OXYCODONE [Concomitant]
     Indication: PAIN
     Route: 048
     Dates: start: 20130924
  17. IBUPROFEN [Concomitant]
     Indication: PAIN
     Dates: start: 20130924
  18. VITAMIN D [Concomitant]
     Indication: PRODUCT USED FOR UNKNOWN INDICATION

REACTIONS (31)
  - Clostridium difficile infection [Not Recovered/Not Resolved]
  - Intestinal dilatation [Unknown]
  - Intestinal prolapse [Unknown]
  - Bladder prolapse [Unknown]
  - Endometriosis [Recovering/Resolving]
  - Pelvic pain [Recovering/Resolving]
  - Metrorrhagia [Not Recovered/Not Resolved]
  - Polyp [Recovered/Resolved]
  - Metrorrhagia [Not Recovered/Not Resolved]
  - Uterine pain [Not Recovered/Not Resolved]
  - Dysuria [Not Recovered/Not Resolved]
  - Abdominal pain [Not Recovered/Not Resolved]
  - Ligament sprain [Recovering/Resolving]
  - Constipation [Recovering/Resolving]
  - Diarrhoea [Unknown]
  - Abdominal pain [Recovered/Resolved]
  - Proctalgia [Recovered/Resolved]
  - Dyspareunia [Recovered/Resolved]
  - Coeliac disease [Unknown]
  - Migraine [Unknown]
  - Vaginal haemorrhage [Unknown]
  - Pollakiuria [Unknown]
  - Endosalpingiosis [Unknown]
  - Abdominal distension [Recovered/Resolved]
  - Abdominal pain [Unknown]
  - Pelvic pain [Unknown]
  - Vaginal haemorrhage [Unknown]
  - Migraine [Unknown]
  - Endometriosis [Unknown]
  - Drug ineffective [Not Recovered/Not Resolved]
  - Hot flush [Recovering/Resolving]
